FAERS Safety Report 14258632 (Version 1)
Quarter: 2017Q4

REPORT INFORMATION
  Report Type: Spontaneous
  Country: US (occurrence: US)
  Receive Date: 20171207
  Receipt Date: 20171207
  Transmission Date: 20180321
  Serious: No
  Sender: FDA-Public Use
  Company Number: US-009507513-1712USA002359

PATIENT
  Age: 28 Year
  Sex: Female
  Weight: 52.15 kg

DRUGS (2)
  1. NUVARING [Suspect]
     Active Substance: ETHINYL ESTRADIOL\ETONOGESTREL
     Indication: CONTRACEPTION
     Dosage: CONTINUOUSLY
     Route: 067
     Dates: end: 2017
  2. NUVARING [Suspect]
     Active Substance: ETHINYL ESTRADIOL\ETONOGESTREL
     Dosage: 3 WEEKS INSIDE THEN 1 WEEK BREAK
     Route: 067
     Dates: start: 2017

REACTIONS (4)
  - Amenorrhoea [Unknown]
  - Inappropriate schedule of drug administration [Unknown]
  - Vaginal haemorrhage [Unknown]
  - Inappropriate schedule of drug administration [Unknown]

NARRATIVE: CASE EVENT DATE: 2016
